FAERS Safety Report 11787860 (Version 1)
Quarter: 2015Q4

REPORT INFORMATION
  Report Type: Spontaneous
  Country: GB (occurrence: GB)
  Receive Date: 20151130
  Receipt Date: 20151130
  Transmission Date: 20160305
  Serious: Yes (Other)
  Sender: FDA-Public Use
  Company Number: PHHY2015GB151599

PATIENT
  Age: 44 Year
  Sex: Female

DRUGS (10)
  1. CLOPIXOL-ACUPHASE [Suspect]
     Active Substance: ZUCLOPENTHIXOL
     Dosage: 50 MG, UNK
     Route: 030
     Dates: start: 20150331, end: 20150331
  2. ARIPIPRAZOLE. [Suspect]
     Active Substance: ARIPIPRAZOLE
     Indication: PRODUCT USED FOR UNKNOWN INDICATION
     Dosage: 15 MG, QD
     Route: 048
     Dates: start: 20150130, end: 20150413
  3. CLONAZEPAM. [Suspect]
     Active Substance: CLONAZEPAM
     Indication: PRODUCT USED FOR UNKNOWN INDICATION
     Dosage: 3 MG, QD
     Route: 048
     Dates: start: 20150329, end: 20150413
  4. CLOPIXOL-ACUPHASE [Suspect]
     Active Substance: ZUCLOPENTHIXOL
     Dosage: 100 MG, UNK
     Route: 030
     Dates: start: 20150413, end: 20150413
  5. LORAZEPAM. [Suspect]
     Active Substance: LORAZEPAM
     Dosage: 4 MG, UNK
     Route: 030
     Dates: start: 20150401, end: 20150401
  6. CLOPIXOL-ACUPHASE [Suspect]
     Active Substance: ZUCLOPENTHIXOL
     Dosage: 150 MG, UNK
     Route: 030
     Dates: start: 20150412, end: 20150412
  7. CLOPIXOL-ACUPHASE [Suspect]
     Active Substance: ZUCLOPENTHIXOL
     Indication: MANIA
     Dosage: 100 MG
     Route: 030
     Dates: start: 20150402, end: 20150402
  8. CLOPIXOL-ACUPHASE [Suspect]
     Active Substance: ZUCLOPENTHIXOL
     Dosage: 100 MG, UNK
     Route: 030
     Dates: start: 20150401, end: 20150401
  9. LORAZEPAM. [Suspect]
     Active Substance: LORAZEPAM
     Indication: PRODUCT USED FOR UNKNOWN INDICATION
     Dosage: 4 MG
     Route: 030
     Dates: start: 20150402, end: 20150402
  10. OLANZAPINE. [Suspect]
     Active Substance: OLANZAPINE
     Indication: PRODUCT USED FOR UNKNOWN INDICATION
     Dosage: UP TO 20 MG AS REQUIRED
     Route: 048
     Dates: start: 201503, end: 201504

REACTIONS (3)
  - Neutropenia [Recovered/Resolved]
  - Drug administration error [None]
  - Medication error [Recovered/Resolved]

NARRATIVE: CASE EVENT DATE: 20150414
